FAERS Safety Report 12477143 (Version 5)
Quarter: 2016Q3

REPORT INFORMATION
  Report Type: Spontaneous
  Country: US (occurrence: US)
  Receive Date: 20160617
  Receipt Date: 20160819
  Transmission Date: 20161109
  Serious: Yes (Other)
  Sender: FDA-Public Use
  Company Number: US-TEVA-667579USA

PATIENT
  Age: 49 Year
  Sex: Female

DRUGS (2)
  1. ZECUITY [Suspect]
     Active Substance: SUMATRIPTAN SUCCINATE
     Route: 062
     Dates: start: 20160420, end: 20160420
  2. ZECUITY [Suspect]
     Active Substance: SUMATRIPTAN SUCCINATE
     Indication: MIGRAINE
     Route: 062
     Dates: start: 20160527, end: 20160527

REACTIONS (14)
  - Application site pain [Recovering/Resolving]
  - Drug ineffective [Unknown]
  - Application site erythema [Recovering/Resolving]
  - Application site burn [Recovering/Resolving]
  - Application site scab [Recovering/Resolving]
  - Application site pain [Recovered/Resolved]
  - Application site exfoliation [Recovering/Resolving]
  - Application site inflammation [Recovering/Resolving]
  - Application site urticaria [Recovering/Resolving]
  - Application site pruritus [Recovering/Resolving]
  - Product leakage [Unknown]
  - Application site discolouration [Recovering/Resolving]
  - Application site irritation [Recovered/Resolved]
  - Wrong technique in product usage process [Unknown]

NARRATIVE: CASE EVENT DATE: 20160527
